FAERS Safety Report 23073920 (Version 1)
Quarter: 2023Q4

REPORT INFORMATION
  Report Type: Spontaneous
  Country: DE (occurrence: DE)
  Receive Date: 20231017
  Receipt Date: 20231017
  Transmission Date: 20240109
  Serious: Yes (Other)
  Sender: FDA-Public Use
  Company Number: None

PATIENT
  Age: 80 Year
  Sex: Male
  Weight: 75 kg

DRUGS (1)
  1. LEVITRA [Suspect]
     Active Substance: VARDENAFIL HYDROCHLORIDE
     Indication: Erectile dysfunction
     Dosage: 5 MG (1/4 TABLETTE)
     Route: 048
     Dates: end: 20230927

REACTIONS (5)
  - Atrial fibrillation [Recovered/Resolved]
  - Asthenia [Recovered/Resolved]
  - Supraventricular extrasystoles [Recovered/Resolved]
  - Wrong technique in product usage process [None]
  - Wrong technique in product usage process [None]
